FAERS Safety Report 7022407-9 (Version None)
Quarter: 2010Q3

REPORT INFORMATION
  Report Type: 
  Country: None (occurrence: None)
  Receive Date: 20100930
  Receipt Date: 20100925
  Transmission Date: 20110219
  Serious: Yes (Other)
  Sender: FDA-Public Use
  Company Number: US-ROCHE-703632

PATIENT
  Sex: Male
  Weight: 63.5 kg

DRUGS (3)
  1. PEGASYS [Suspect]
     Indication: HEPATITIS C
     Dosage: FORM: PRE FILLED SYRINGES
     Route: 058
     Dates: start: 20100507
  2. COPEGUS [Interacting]
     Indication: HEPATITIS C
     Dosage: DAILY DIVIDED DOSES
     Route: 048
     Dates: start: 20100507
  3. NEUPOGEN [Interacting]
     Indication: WHITE BLOOD CELL COUNT DECREASED
     Dosage: RECEIVED FOUR INJECTIONS
     Route: 065

REACTIONS (11)
  - BACK PAIN [None]
  - BLOOD PRESSURE INCREASED [None]
  - DRUG INTERACTION [None]
  - FATIGUE [None]
  - HEADACHE [None]
  - INSOMNIA [None]
  - MYALGIA [None]
  - NEPHROLITHIASIS [None]
  - PAIN IN EXTREMITY [None]
  - RED BLOOD CELL COUNT DECREASED [None]
  - WHITE BLOOD CELL COUNT DECREASED [None]
